FAERS Safety Report 10246566 (Version 1)
Quarter: 2014Q2

REPORT INFORMATION
  Report Type: Spontaneous
  Country: US (occurrence: None)
  Receive Date: 20140617
  Receipt Date: 20140617
  Transmission Date: 20141212
  Serious: Yes (Disabling)
  Sender: FDA-Public Use
  Company Number: None

PATIENT
  Age: 34 Year
  Sex: Female
  Weight: 61.24 kg

DRUGS (1)
  1. CIPRO GENERIC CIPROFLOXEN [Suspect]
     Indication: GASTRIC INFECTION

REACTIONS (6)
  - Connective tissue disorder [None]
  - Joint dislocation [None]
  - Joint dislocation [None]
  - Nerve conduction studies abnormal [None]
  - Muscle spasms [None]
  - Bone disorder [None]
